FAERS Safety Report 6962947-1 (Version None)
Quarter: 2010Q3

REPORT INFORMATION
  Report Type: 
  Country: None (occurrence: None)
  Receive Date: 20100902
  Receipt Date: 20100825
  Transmission Date: 20110219
  Serious: Yes (Hospitalization)
  Sender: FDA-Public Use
  Company Number: JP-ROCHE-720625

PATIENT
  Sex: Male
  Weight: 53 kg

DRUGS (24)
  1. CAPECITABINE [Suspect]
     Indication: GASTROOESOPHAGEAL CANCER
     Dosage: 2 WEEKS ADMINISTRATION FOLLOWED BY 1 WEEK REST.
     Route: 048
     Dates: start: 20100614, end: 20100729
  2. CISPLATIN [Suspect]
     Indication: GASTROOESOPHAGEAL CANCER
     Dosage: ROUTE: INTRAVENOUS (NOT OTHERWISE SPECIFIED). DOSAGE IS UNCERTAIN. LAST DOSE PRIOR TO SAE: 27 JUL10
     Route: 042
     Dates: start: 20100614
  3. ERBITUX [Suspect]
     Dosage: ROUTE: INTRAVENOUS (NOT OTHERWISE SPECIFIED). DOSAGE IS UNCERTAIN. LAST DOSE PRIOR TO SAE: 27 JUL 10
     Route: 042
     Dates: start: 20100614
  4. TEPRENONE [Concomitant]
     Dosage: FROM: PERORAL AGENT
     Route: 048
  5. OXYCODONE HCL [Concomitant]
     Dosage: FORM: PERORAL AGENT
     Route: 048
     Dates: start: 20100605
  6. OXYCODONE HCL [Concomitant]
     Route: 048
     Dates: start: 20100606, end: 20100611
  7. PROCHLORPERAZINE [Concomitant]
     Dosage: FORM: PERORAL AGENT
     Route: 048
     Dates: start: 20100606
  8. FERROUS SULFATE [Concomitant]
     Dosage: FORM: PERORAL AGENT
     Route: 048
     Dates: start: 20100607
  9. LANSOPRAZOLE [Concomitant]
     Dosage: ROUTE: INTRAVENOUS (NOT OTHERWISE SPECIFIED)
     Route: 042
     Dates: start: 20100605, end: 20100605
  10. LANSOPRAZOLE [Concomitant]
     Route: 042
     Dates: start: 20100606, end: 20100608
  11. LANSOPRAZOLE [Concomitant]
     Route: 042
     Dates: start: 20100609
  12. MAGNESIUM OXIDE [Concomitant]
     Dosage: FORM: PERORAL AGENT
     Route: 048
     Dates: start: 20100614
  13. HIRUDOID [Concomitant]
     Dosage: FORM: OINTMENT AND CREAM
     Route: 061
     Dates: start: 20100614
  14. VITAMIN A [Concomitant]
     Dosage: FORM: OINTMENT AND CREAM
     Route: 061
     Dates: start: 20100614
  15. WHITE PETROLATUM [Concomitant]
     Dosage: FORM: OINTMENT AND CREAM
     Route: 061
     Dates: start: 20100614
  16. LOXOPROFEN [Concomitant]
     Dosage: FORM: PERORAL AGENT
     Route: 048
     Dates: start: 20100504, end: 20100604
  17. MARZULENE-S [Concomitant]
     Dosage: FORM: PERORAL AGENT
     Route: 048
     Dates: start: 20100514, end: 20100604
  18. SODIUM ALGINATE [Concomitant]
     Dosage: FORM: PERORAL AGENT
     Route: 048
     Dates: start: 20100605, end: 20100611
  19. THROMBIN LOCAL SOLUTION [Concomitant]
     Dosage: FORM: PERORAL AGENT
     Route: 048
     Dates: start: 20100605, end: 20100611
  20. BROTIZOLAM [Concomitant]
     Dosage: FORM: PERORAL AGENT
     Route: 048
     Dates: start: 20100606, end: 20100613
  21. FLUNITRAZEPAM [Concomitant]
     Dosage: ROUTE: INTRAVENOUS (NOT OTHERWISE SPECIFIED)
     Route: 042
     Dates: start: 20100508, end: 20100608
  22. ACETAMINOPHEN [Concomitant]
     Dosage: FORM: PERORAL AGENT
     Route: 048
     Dates: start: 20100605, end: 20100608
  23. MELOXICAM [Concomitant]
     Dosage: FORM: PERORAL AGENT
     Route: 048
     Dates: start: 20100614
  24. DICLOFENAC [Concomitant]
     Dosage: FORM REPORTED AS UNCERTAINTY
     Route: 054
     Dates: start: 20100514, end: 20100604

REACTIONS (1)
  - CEREBRAL INFARCTION [None]
